FAERS Safety Report 21307813 (Version 2)
Quarter: 2023Q2

REPORT INFORMATION
  Report Type: Spontaneous
  Country: CA (occurrence: CA)
  Receive Date: 20220908
  Receipt Date: 20230630
  Transmission Date: 20230722
  Serious: Yes (Hospitalization, Other)
  Sender: FDA-Public Use
  Company Number: CA-CATALYST PHARMACEUTICALS, INC-2022CAT00224

PATIENT
  Sex: Female

DRUGS (3)
  1. FIRDAPSE [Suspect]
     Active Substance: AMIFAMPRIDINE PHOSPHATE
     Indication: Myasthenic syndrome
     Dosage: UNKNOWN
     Route: 048
     Dates: start: 20220326
  2. FIRDAPSE [Suspect]
     Active Substance: AMIFAMPRIDINE PHOSPHATE
     Dosage: 10 MG, 6X PER DAY
     Route: 048
  3. MESTINON [Concomitant]
     Active Substance: PYRIDOSTIGMINE BROMIDE
     Indication: Product used for unknown indication
     Dosage: UNK
     Route: 065

REACTIONS (17)
  - Migraine [Unknown]
  - Pain of skin [Unknown]
  - Hospitalisation [Recovered/Resolved]
  - Headache [Unknown]
  - Memory impairment [Unknown]
  - Fatigue [Unknown]
  - Lethargy [Unknown]
  - Chest discomfort [Unknown]
  - Dyspepsia [Unknown]
  - Abdominal discomfort [Unknown]
  - Eye disorder [Unknown]
  - Confusional state [Unknown]
  - Malaise [Unknown]
  - Nausea [Unknown]
  - Hypertension [Unknown]
  - Cough [Unknown]
  - Therapeutic product effect delayed [Unknown]

NARRATIVE: CASE EVENT DATE: 20220101
